FAERS Safety Report 8307356-8 (Version None)
Quarter: 2012Q2

REPORT INFORMATION
  Report Type: 
  Country: None (occurrence: None)
  Receive Date: 20120424
  Receipt Date: 20120412
  Transmission Date: 20120825
  Serious: Yes (Disabling, Other)
  Sender: FDA-Public Use
  Company Number: CH-BRISTOL-MYERS SQUIBB COMPANY-16520934

PATIENT
  Age: 60 Year
  Sex: Male
  Weight: 67 kg

DRUGS (7)
  1. ZOMETA [Suspect]
     Indication: NEOPLASM MALIGNANT
     Dosage: INTRP AND REINTIATED,LAST DOSE ON 09FEB12 AGAIN SUSPENDED
     Route: 041
     Dates: start: 20090616, end: 20120209
  2. HERCEPTIN [Suspect]
     Indication: BREAST CANCER
     Route: 041
     Dates: start: 20111101
  3. AVASTIN [Suspect]
     Indication: BREAST CANCER
     Route: 042
     Dates: start: 20100309, end: 20110214
  4. CARBOPLATIN [Suspect]
     Indication: BREAST CANCER
     Route: 041
     Dates: start: 20111101
  5. TAXOTERE [Suspect]
     Indication: BREAST CANCER
     Route: 041
     Dates: start: 20111101
  6. TAXOL [Suspect]
     Indication: BREAST CANCER
     Dates: start: 20100309, end: 20110214
  7. NEULASTA [Concomitant]
     Route: 058
     Dates: start: 20111101

REACTIONS (2)
  - OSTEONECROSIS [None]
  - ANEURYSM [None]
